FAERS Safety Report 9239951 (Version 1)
Quarter: 2013Q2

REPORT INFORMATION
  Report Type: Other
  Country: US (occurrence: US)
  Receive Date: 20130418
  Receipt Date: 20130418
  Transmission Date: 20140414
  Serious: Yes (Other)
  Sender: FDA-Public Use
  Company Number: US-BRISTOL-MYERS SQUIBB COMPANY-18807511

PATIENT
  Age: 54 Year
  Sex: Male

DRUGS (1)
  1. IPILIMUMAB [Suspect]
     Indication: METASTATIC MALIGNANT MELANOMA
     Dosage: 3 INDUCTION DOSES

REACTIONS (3)
  - Alopecia universalis [Unknown]
  - Vitiligo [Unknown]
  - Hypophysitis [Unknown]
